FAERS Safety Report 7054738-0 (Version None)
Quarter: 2010Q4

REPORT INFORMATION
  Report Type: 
  Country: None (occurrence: None)
  Receive Date: 20101018
  Receipt Date: 20101011
  Transmission Date: 20110411
  Serious: Yes (Death, Hospitalization, Other)
  Sender: FDA-Public Use
  Company Number: 2010US003887

PATIENT
  Age: 45 Year
  Sex: Male

DRUGS (1)
  1. PROGRAF [Suspect]
     Indication: INTESTINAL TRANSPLANT

REACTIONS (20)
  - ANAEMIA [None]
  - AORTIC ANEURYSM [None]
  - DEPRESSION [None]
  - DEVICE RELATED INFECTION [None]
  - DIABETES MELLITUS [None]
  - FUNGAEMIA [None]
  - HEPATIC FAILURE [None]
  - HYPERTENSION [None]
  - HYPOTENSION [None]
  - INTESTINE TRANSPLANT REJECTION [None]
  - MENTAL STATUS CHANGES [None]
  - METABOLIC ACIDOSIS [None]
  - MULTI-ORGAN FAILURE [None]
  - MYCOTIC ANEURYSM [None]
  - NEUTROPENIA [None]
  - PAIN [None]
  - RENAL FAILURE [None]
  - SEPSIS [None]
  - SOMNOLENCE [None]
  - TYPE 2 DIABETES MELLITUS [None]
